FAERS Safety Report 5827442-1 (Version None)
Quarter: 2008Q3

REPORT INFORMATION
  Report Type: 
  Country: None (occurrence: None)
  Receive Date: 20080725
  Receipt Date: 20080715
  Transmission Date: 20090109
  Serious: Yes (Hospitalization)
  Sender: FDA-Public Use
  Company Number: 2006BI018881

PATIENT
  Sex: Female
  Weight: 48.0813 kg

DRUGS (1)
  1. AVONEX [Suspect]
     Indication: MULTIPLE SCLEROSIS
     Dosage: 30 UG;QW;IM
     Route: 030
     Dates: start: 20040730

REACTIONS (9)
  - CONFUSIONAL STATE [None]
  - DISEASE PROGRESSION [None]
  - FAILURE TO THRIVE [None]
  - GAIT DISTURBANCE [None]
  - HYPOPHAGIA [None]
  - MULTIPLE SCLEROSIS [None]
  - OSTEOPOROSIS [None]
  - SPINAL DISORDER [None]
  - WEIGHT DECREASED [None]
